FAERS Safety Report 10268769 (Version 1)
Quarter: 2014Q2

REPORT INFORMATION
  Report Type: Spontaneous
  Country: IT (occurrence: IT)
  Receive Date: 20140630
  Receipt Date: 20140630
  Transmission Date: 20141212
  Serious: Yes (Other)
  Sender: FDA-Public Use
  Company Number: IT-WATSON-2013B-02329

PATIENT
  Age: 49 Year
  Sex: Male

DRUGS (2)
  1. GEMCITABINE (UNKNOWN) [Suspect]
     Indication: TRANSITIONAL CELL CARCINOMA
     Dosage: 2280 MG, CYCLICAL
     Route: 042
     Dates: start: 20130327, end: 20130514
  2. CARBOPLATIN (UNKNOWN) [Suspect]
     Indication: TRANSITIONAL CELL CARCINOMA
     Dosage: 390 MG, CYCLICAL
     Route: 042
     Dates: start: 20130327, end: 20130514

REACTIONS (3)
  - Neutropenia [Recovered/Resolved]
  - Platelet count abnormal [Unknown]
  - Influenza [Unknown]
